FAERS Safety Report 9602122 (Version 2)
Quarter: 2014Q1

REPORT INFORMATION
  Report Type: Spontaneous
  Country: GB (occurrence: None)
  Receive Date: 20131002
  Receipt Date: 20140130
  Transmission Date: 20141002
  Serious: Yes (Other)
  Sender: FDA-Public Use
  Company Number: FK201304415

PATIENT
  Age: 27 Year
  Sex: Female
  Weight: 72.1 kg

DRUGS (10)
  1. ONDANSETRON [Suspect]
     Indication: PROPHYLAXIS OF NAUSEA AND VOMITING
     Dosage: 4 MG, AS REQUIRED, ORAL
     Route: 048
     Dates: start: 20130907, end: 20130911
  2. CYCLIZINE [Suspect]
     Indication: PROPHYLAXIS OF NAUSEA AND VOMITING
     Dosage: 50 MG, AS REQUIRED , ORAL
     Route: 048
     Dates: start: 20130907, end: 20130911
  3. TRAMADOL [Suspect]
     Indication: PAIN
     Dosage: UNKNOWN, AS REQUIRED, ORAL
     Route: 048
     Dates: start: 20130907
  4. CO-CODAMOL (PANADEINE CO) [Concomitant]
  5. ENOXAPARIN (ENOXAPARIN) [Concomitant]
  6. IBUPROFEN (IBUPROFEN) [Concomitant]
  7. METOCLOPRAMIDE (METOCLOPRAMIDE) [Concomitant]
  8. ORAMORPH (MORPHIE SULFATE) [Concomitant]
  9. SALBUTAMOL (SALBUTAMOL) [Concomitant]
  10. PARACETAMOL (PARACETAMOL) [Concomitant]

REACTIONS (6)
  - Loss of consciousness [None]
  - Tremor [None]
  - Convulsion [None]
  - Pallor [None]
  - Feeling abnormal [None]
  - Chest discomfort [None]
